FAERS Safety Report 7060909-X (Version None)
Quarter: 2010Q4

REPORT INFORMATION
  Report Type: 
  Country: None (occurrence: None)
  Receive Date: 20101025
  Receipt Date: 20101019
  Transmission Date: 20110411
  Serious: Yes (Other)
  Sender: FDA-Public Use
  Company Number: CA-BRISTOL-MYERS SQUIBB COMPANY-14569214

PATIENT
  Age: 39 Year
  Sex: Female

DRUGS (9)
  1. ORENCIA [Suspect]
     Indication: RHEUMATOID ARTHRITIS
     Dosage: THERAPY DATES: 18MAR09,15APR09,10JUN10,19OCT2010 (Q4) NO OF INF:20
     Route: 042
     Dates: start: 20090318
  2. PLAQUENIL [Concomitant]
  3. PREDNISONE [Concomitant]
  4. NAPROSYN [Concomitant]
  5. CITALOPRAM HYDROBROMIDE [Concomitant]
  6. SUPEUDOL [Concomitant]
  7. PRAVASTATIN SODIUM [Concomitant]
  8. SUPEUDOL [Concomitant]
  9. PREVACID [Concomitant]

REACTIONS (5)
  - HEADACHE [None]
  - NAUSEA [None]
  - PHARYNGITIS [None]
  - PHLEBITIS [None]
  - VOMITING [None]
